FAERS Safety Report 16195824 (Version 3)
Quarter: 2019Q2

REPORT INFORMATION
  Report Type: Spontaneous
  Country: ZA (occurrence: ZA)
  Receive Date: 20190415
  Receipt Date: 20190517
  Transmission Date: 20190711
  Serious: Yes (Other)
  Sender: FDA-Public Use
  Company Number: ZA-CIPLA LTD.-2019ZA01906

PATIENT

DRUGS (1)
  1. ESCITALOPRAM [Suspect]
     Active Substance: ESCITALOPRAM OXALATE
     Indication: PSYCHOTIC DISORDER
     Dosage: 10 MILLIGRAM, QD
     Route: 048
     Dates: start: 201812

REACTIONS (1)
  - Gout [Recovered/Resolved]

NARRATIVE: CASE EVENT DATE: 201812
